FAERS Safety Report 18943536 (Version 1)
Quarter: 2021Q1

REPORT INFORMATION
  Report Type: Report from Study
  Country: IE (occurrence: IE)
  Receive Date: 20210226
  Receipt Date: 20210226
  Transmission Date: 20210420
  Serious: Yes (Other)
  Sender: FDA-Public Use
  Company Number: IE-TEVA-2021-IE-1884738

PATIENT
  Age: 24 Year
  Sex: Male

DRUGS (4)
  1. AJOVY [Suspect]
     Active Substance: FREMANEZUMAB-VFRM
     Indication: PRODUCT USED FOR UNKNOWN INDICATION
     Route: 058
     Dates: start: 20201111
  2. ZOMIG [Concomitant]
     Active Substance: ZOLMITRIPTAN
     Dosage: AS REQUIRED
  3. NAPROXEN. [Concomitant]
     Active Substance: NAPROXEN
     Dosage: AS REQUIRED
  4. TOPIRAMATE. [Concomitant]
     Active Substance: TOPIRAMATE
     Dosage: 210 MILLIGRAM DAILY;

REACTIONS (3)
  - Abdominal pain upper [Unknown]
  - Coeliac disease [Unknown]
  - Diet noncompliance [Unknown]

NARRATIVE: CASE EVENT DATE: 202101
